FAERS Safety Report 7363429-8 (Version None)
Quarter: 2011Q1

REPORT INFORMATION
  Report Type: 
  Country: None (occurrence: None)
  Receive Date: 20110321
  Receipt Date: 20110308
  Transmission Date: 20110831
  Serious: Yes (Hospitalization, Other)
  Sender: FDA-Public Use
  Company Number: US-JNJFOC-20090607985

PATIENT
  Sex: Female
  Weight: 43.2 kg

DRUGS (5)
  1. REMICADE [Suspect]
     Indication: COLITIS ULCERATIVE
     Dosage: RECEIVED 12 INFUSIONS DURING THIS TIME
     Route: 042
  2. REMICADE [Suspect]
     Indication: COLITIS
     Dosage: RECEIVED 12 INFUSIONS DURING THIS TIME
     Route: 042
  3. CORTICOSTEROID [Concomitant]
     Indication: COLITIS ULCERATIVE
  4. 5-AMINOSALICYLIC ACID [Concomitant]
     Route: 048
  5. MERCAPTOPURINE [Concomitant]

REACTIONS (3)
  - INTESTINAL OBSTRUCTION [None]
  - DRUG INEFFECTIVE [None]
  - COLITIS ULCERATIVE [None]
